FAERS Safety Report 17814463 (Version 2)
Quarter: 2020Q4

REPORT INFORMATION
  Report Type: Spontaneous
  Country: CA (occurrence: CA)
  Receive Date: 20200522
  Receipt Date: 20201222
  Transmission Date: 20210113
  Serious: Yes (Other)
  Sender: FDA-Public Use
  Company Number: CA-ROCHE-2599167

PATIENT
  Age: 55 Year
  Sex: Female

DRUGS (19)
  1. DIPHENHYDRAMINE HYDROCHLORIDE. [Concomitant]
     Active Substance: DIPHENHYDRAMINE HYDROCHLORIDE
     Route: 048
  2. HUMALOG [Concomitant]
     Active Substance: INSULIN LISPRO
  3. METHYLPREDNISOLONE. [Concomitant]
     Active Substance: METHYLPREDNISOLONE
     Route: 042
  4. PREDNISONE. [Concomitant]
     Active Substance: PREDNISONE
  5. FLUCONAZOLE. [Suspect]
     Active Substance: FLUCONAZOLE
     Indication: ORAL CANDIDIASIS
     Route: 042
  6. SALBUTAMOL [Concomitant]
     Active Substance: ALBUTEROL
  7. RITUXIMAB. [Suspect]
     Active Substance: RITUXIMAB
     Indication: RHEUMATOID ARTHRITIS
     Route: 041
  8. INDOMETACIN [Concomitant]
     Active Substance: INDOMETHACIN
  9. LEVEMIR [Concomitant]
     Active Substance: INSULIN DETEMIR
     Indication: TYPE 1 DIABETES MELLITUS
     Route: 058
  10. ACETAMINOPHEN. [Concomitant]
     Active Substance: ACETAMINOPHEN
     Route: 048
  11. ACTEMRA [Suspect]
     Active Substance: TOCILIZUMAB
     Indication: RHEUMATOID ARTHRITIS
     Route: 042
  12. ASPIRIN [ACETYLSALICYLIC ACID] [Concomitant]
     Active Substance: ASPIRIN
  13. PANTOPRAZOLE [Concomitant]
     Active Substance: PANTOPRAZOLE
  14. TRAMADOL. [Concomitant]
     Active Substance: TRAMADOL
  15. COD LIVER OIL [Concomitant]
     Active Substance: COD LIVER OIL
  16. ALENDRONATE SODIUM;VITAMIN D3 [Suspect]
     Active Substance: ALENDRONATE SODIUM\CHOLECALCIFEROL
     Indication: PRODUCT USED FOR UNKNOWN INDICATION
     Route: 065
  17. METHOTREXATE. [Suspect]
     Active Substance: METHOTREXATE
     Indication: RHEUMATOID ARTHRITIS
     Route: 065
  18. FOLIC ACID. [Concomitant]
     Active Substance: FOLIC ACID
  19. MELATONIN [Concomitant]
     Active Substance: MELATONIN

REACTIONS (9)
  - Pain [Not Recovered/Not Resolved]
  - Foot fracture [Not Recovered/Not Resolved]
  - Oral candidiasis [Not Recovered/Not Resolved]
  - Weight decreased [Not Recovered/Not Resolved]
  - Therapeutic product effect decreased [Unknown]
  - Lower respiratory tract infection [Not Recovered/Not Resolved]
  - Blood pressure fluctuation [Not Recovered/Not Resolved]
  - Pain in extremity [Not Recovered/Not Resolved]
  - Ear infection [Not Recovered/Not Resolved]
